FAERS Safety Report 5054718-0 (Version None)
Quarter: 2006Q2

REPORT INFORMATION
  Report Type: 
  Country: None (occurrence: None)
  Receive Date: 20060614
  Receipt Date: 20060215
  Transmission Date: 20061013
  Serious: No
  Sender: FDA-Public Use
  Company Number: US200602003259

PATIENT
  Age: 38 Year
  Sex: Male

DRUGS (3)
  1. CIALIS [Suspect]
     Indication: ERECTILE DYSFUNCTION
     Dosage: 10 MG, AS NEEDED
  2. ALLEGRA-D /01367401/(FEXOFENADINE HYDROCHLORIDE, PSEUDOEPHEDRINE HYDRO [Concomitant]
  3. HYDROXYZINE [Concomitant]

REACTIONS (6)
  - ANXIETY [None]
  - HEADACHE [None]
  - HEART RATE INCREASED [None]
  - MALAISE [None]
  - SENSATION OF PRESSURE [None]
  - SLEEP DISORDER [None]
